FAERS Safety Report 7490105-3 (Version None)
Quarter: 2011Q2

REPORT INFORMATION
  Report Type: 
  Country: None (occurrence: None)
  Receive Date: 20110519
  Receipt Date: 20110516
  Transmission Date: 20111010
  Serious: Yes (Other)
  Sender: FDA-Public Use
  Company Number: US-PFIZER INC-2011105690

PATIENT
  Sex: Male
  Weight: 96.145 kg

DRUGS (9)
  1. CLONIDINE [Concomitant]
     Dosage: UNK
  2. CELEBREX [Suspect]
     Indication: GOUT
     Dosage: 200 MG, UNK
     Route: 048
     Dates: start: 20100101, end: 20110501
  3. ALLOPURINOL [Concomitant]
     Dosage: UNK
     Route: 048
  4. ACETYLSALICYLIC ACID [Concomitant]
     Dosage: 81 MG, UNK
     Route: 048
  5. POTASSIUM [Concomitant]
     Dosage: 10 UG, UNK
     Route: 048
  6. WARFARIN SODIUM [Concomitant]
     Dosage: 6 MG, UNK
     Route: 048
  7. DIGOXIN [Concomitant]
     Dosage: 0.125 UG, UNK
     Route: 048
  8. FUROSEMIDE [Concomitant]
     Dosage: 40 MG, UNK
     Route: 048
  9. COLCHICINE [Concomitant]
     Dosage: 0.6 MG, UNK
     Route: 048

REACTIONS (4)
  - DYSPNOEA [None]
  - BACK PAIN [None]
  - DECREASED APPETITE [None]
  - MOVEMENT DISORDER [None]
